FAERS Safety Report 6731585-8 (Version None)
Quarter: 2010Q2

REPORT INFORMATION
  Report Type: 
  Country: None (occurrence: None)
  Receive Date: 20100518
  Receipt Date: 20100518
  Transmission Date: 20101027
  Serious: Yes (Other)
  Sender: FDA-Public Use
  Company Number: None

PATIENT
  Age: 60 Year
  Sex: Female
  Weight: 48.0813 kg

DRUGS (2)
  1. TYLENOL-500 [Suspect]
     Indication: ENDODONTIC PROCEDURE
     Dosage: 4 ONE TIME PO, APPROX 1 HOUR
     Route: 048
     Dates: start: 20100515, end: 20100515
  2. TYLENOL-500 [Suspect]
     Indication: PAIN
     Dosage: 4 ONE TIME PO, APPROX 1 HOUR
     Route: 048
     Dates: start: 20100515, end: 20100515

REACTIONS (2)
  - NAUSEA [None]
  - PRESYNCOPE [None]
